FAERS Safety Report 10232416 (Version 2)
Quarter: 2014Q2

REPORT INFORMATION
  Report Type: Spontaneous
  Country: US (occurrence: US)
  Receive Date: 20140612
  Receipt Date: 20140623
  Transmission Date: 20141212
  Serious: No
  Sender: FDA-Public Use
  Company Number: US-BAYER-2014-087881

PATIENT
  Age: 30 Year
  Sex: Female

DRUGS (1)
  1. MIRENA [Suspect]
     Indication: CONTRACEPTION
     Dosage: 20 MCG/24HR, CONT
     Route: 015
     Dates: start: 20131030, end: 20140416

REACTIONS (8)
  - Vision blurred [Recovered/Resolved]
  - Nausea [Recovered/Resolved]
  - Head discomfort [Recovered/Resolved]
  - Photophobia [Recovered/Resolved]
  - Fatigue [Recovered/Resolved]
  - Disturbance in attention [Recovered/Resolved]
  - Visual impairment [Recovered/Resolved]
  - Feeling abnormal [Recovered/Resolved]
